FAERS Safety Report 8949844 (Version 4)
Quarter: 2013Q1

REPORT INFORMATION
  Report Type: Report from Study
  Country: DE (occurrence: DE)
  Receive Date: 20121206
  Receipt Date: 20130123
  Transmission Date: 20140127
  Serious: Yes (Hospitalization, Other)
  Sender: FDA-Public Use
  Company Number: PHHY2012DE112266

PATIENT
  Age: 79 Year
  Sex: Female
  Weight: 59 kg

DRUGS (8)
  1. AMN107 [Suspect]
     Indication: CHRONIC MYELOID LEUKAEMIA
     Dosage: 400 MG, QD
     Route: 048
     Dates: start: 20110831, end: 20110929
  2. AMN107 [Suspect]
     Dosage: 400 MG, DAILY
     Route: 048
     Dates: start: 20111007
  3. CLOPIDOGREL [Concomitant]
     Indication: ISCHAEMIC HEART DISEASE PROPHYLAXIS
     Dosage: 75 MG, DAILY
     Dates: start: 20080615, end: 20110913
  4. PLAVIX [Concomitant]
     Indication: ISCHAEMIC HEART DISEASE PROPHYLAXIS
     Route: 048
  5. METFORMIN [Concomitant]
     Indication: DIABETES MELLITUS
     Dosage: 850 MG, QD
     Dates: start: 20020715
  6. LISINOPRIL [Concomitant]
     Indication: HYPERTENSION
     Dosage: 10 MG, QD
     Route: 048
     Dates: start: 20020715
  7. BISOPROLOL [Concomitant]
     Indication: HYPERTENSION
     Dosage: 2.5 MG, QD
     Route: 048
     Dates: start: 20020715
  8. ZYPREXA [Concomitant]

REACTIONS (7)
  - Transient ischaemic attack [Recovered/Resolved]
  - Aphasia [Recovered/Resolved]
  - Apraxia [Recovered/Resolved]
  - Speech disorder [Recovered/Resolved]
  - Carotid artery stenosis [Unknown]
  - Blood alkaline phosphatase increased [Not Recovered/Not Resolved]
  - Blood bilirubin increased [Not Recovered/Not Resolved]
